FAERS Safety Report 25413811 (Version 1)
Quarter: 2025Q2

REPORT INFORMATION
  Report Type: Spontaneous
  Country: AU (occurrence: AU)
  Receive Date: 20250609
  Receipt Date: 20250609
  Transmission Date: 20250716
  Serious: Yes (Hospitalization)
  Sender: ELI LILLY AND COMPANY
  Company Number: AU-ELI_LILLY_AND_COMPANY-AU202505026358

PATIENT
  Age: 54 Year
  Sex: Female

DRUGS (14)
  1. ABEMACICLIB [Suspect]
     Active Substance: ABEMACICLIB
     Indication: Breast cancer
     Route: 048
     Dates: start: 20250203, end: 20250206
  2. CAMIZESTRANT [Suspect]
     Active Substance: CAMIZESTRANT
     Indication: Breast cancer
     Dosage: 75 MG, DAILY
     Route: 048
     Dates: start: 20250203, end: 20250221
  3. METFORMIN HYDROCHLORIDE [Concomitant]
     Active Substance: METFORMIN HYDROCHLORIDE
     Indication: Type 2 diabetes mellitus
     Dosage: 2000 MG, DAILY
     Route: 048
     Dates: start: 2014
  4. PANTOPRAZOLE [Concomitant]
     Active Substance: PANTOPRAZOLE
     Indication: Reflux gastritis
     Dosage: 40 MG, DAILY
     Route: 048
     Dates: start: 2014
  5. EZETIMIBE [Concomitant]
     Active Substance: EZETIMIBE
     Indication: Blood cholesterol increased
     Dosage: 10 MG, DAILY
     Route: 048
     Dates: start: 2014
  6. VITAMIN D3 [Concomitant]
     Active Substance: CHOLECALCIFEROL
     Indication: Vitamin D deficiency
     Route: 048
     Dates: start: 2015
  7. MAGNESIUM [Concomitant]
     Active Substance: MAGNESIUM
     Indication: Supplementation therapy
     Dosage: 90 MG, DAILY
     Route: 048
     Dates: start: 2015
  8. LINAGLIPTIN [Concomitant]
     Active Substance: LINAGLIPTIN
     Indication: Type 2 diabetes mellitus
     Dosage: 5 MG, DAILY
     Route: 048
     Dates: start: 2020
  9. INSULIN NOS [Concomitant]
     Active Substance: INSULIN NOS
     Indication: Type 2 diabetes mellitus
     Route: 058
     Dates: start: 2023
  10. NALOXONE HYDROCHLORIDE\OXYCODONE HYDROCHLORIDE [Concomitant]
     Active Substance: NALOXONE HYDROCHLORIDE\OXYCODONE HYDROCHLORIDE
     Indication: Neuralgia
     Dosage: 5 MG, DAILY
     Route: 048
     Dates: start: 202406
  11. PANADOL [Concomitant]
     Active Substance: ACETAMINOPHEN
     Indication: Neuralgia
     Dosage: 2000 MG, DAILY
     Route: 048
     Dates: start: 202406
  12. GABAPENTIN [Concomitant]
     Active Substance: GABAPENTIN
     Indication: Neuralgia
     Dosage: 300 MG, DAILY
     Route: 048
     Dates: start: 202407
  13. MELOXICAM [Concomitant]
     Active Substance: MELOXICAM
     Indication: Neuralgia
     Dosage: 7.5 MG, DAILY
     Route: 048
     Dates: start: 202409
  14. LOPERAMIDE [Concomitant]
     Active Substance: LOPERAMIDE
     Indication: Diarrhoea
     Route: 048
     Dates: start: 20250203, end: 20250203

REACTIONS (1)
  - Acute kidney injury [Recovered/Resolved]

NARRATIVE: CASE EVENT DATE: 20250207
